FAERS Safety Report 17282163 (Version 1)
Quarter: 2020Q1

REPORT INFORMATION
  Report Type: Spontaneous
  Country: US (occurrence: US)
  Receive Date: 20200117
  Receipt Date: 20200117
  Transmission Date: 20200409
  Serious: No
  Sender: FDA-Public Use
  Company Number: US-ASTRAZENECA-2019SF86875

PATIENT
  Age: 16046 Day
  Sex: Male

DRUGS (1)
  1. FARXIGA [Suspect]
     Active Substance: DAPAGLIFLOZIN PROPANEDIOL
     Dosage: 5.0MG UNKNOWN
     Route: 048
     Dates: start: 20191218

REACTIONS (15)
  - Asthenia [Unknown]
  - Diarrhoea [Unknown]
  - Feeding disorder [Unknown]
  - Taste disorder [Unknown]
  - Dysstasia [Unknown]
  - Abdominal pain lower [Unknown]
  - Muscle spasms [Unknown]
  - Decreased appetite [Unknown]
  - Eructation [Unknown]
  - Abdominal pain [Unknown]
  - Muscle tightness [Unknown]
  - Nausea [Unknown]
  - Dry mouth [Unknown]
  - Dizziness [Unknown]
  - Flatulence [Unknown]

NARRATIVE: CASE EVENT DATE: 20191218
